FAERS Safety Report 4448173-9 (Version None)
Quarter: 2004Q3

REPORT INFORMATION
  Report Type: 
  Country: None (occurrence: None)
  Receive Date: 20040813
  Receipt Date: 20040601
  Transmission Date: 20050211
  Serious: Yes (Hospitalization)
  Sender: FDA-Public Use
  Company Number: S04-USA-02063-01

PATIENT
  Age: 73 Year
  Sex: Female
  Weight: 59.8748 kg

DRUGS (3)
  1. NAMENDA [Suspect]
     Indication: DEMENTIA
     Dosage: 5 MG QD PO
     Route: 048
  2. ZOCOR [Concomitant]
  3. ARICEPT [Concomitant]

REACTIONS (1)
  - CEREBROVASCULAR ACCIDENT [None]
